FAERS Safety Report 8759687 (Version 1)
Quarter: 2012Q4

REPORT INFORMATION
  Report Type: 
  Country: TR (occurrence: TR)
  Receive Date: 20120830
  Receipt Date: 20120830
  Transmission Date: 20130627
  Serious: Yes (Life-Threatening)
  Sender: FDA-Public Use
  Company Number: TR-ROCHE-1002163

PATIENT
  Sex: Male
  Weight: 65 kg

DRUGS (2)
  1. COPEGUS [Suspect]
     Indication: HEPATITIS C
     Route: 048
     Dates: start: 20100729, end: 201104
  2. PEGASYS [Suspect]
     Indication: HEPATITIS C
     Route: 058
     Dates: start: 20100729, end: 201104

REACTIONS (2)
  - Pleural effusion [Not Recovered/Not Resolved]
  - Lung infiltration [Not Recovered/Not Resolved]
